FAERS Safety Report 14562175 (Version 3)
Quarter: 2018Q2

REPORT INFORMATION
  Report Type: Report from Study
  Country: DE (occurrence: DE)
  Receive Date: 20180222
  Receipt Date: 20180412
  Transmission Date: 20180711
  Serious: Yes (Other)
  Sender: FDA-Public Use
  Company Number: DE-PFIZER INC-2018068580

PATIENT
  Age: 7 Month

DRUGS (4)
  1. SILDENAFIL CITRATE. [Suspect]
     Active Substance: SILDENAFIL CITRATE
     Indication: CONGENITAL DIAPHRAGMATIC HERNIA
     Dosage: 1.6 MG/KG, DAILY
     Route: 041
  2. BOSENTAN. [Suspect]
     Active Substance: BOSENTAN
     Indication: PULMONARY HYPERTENSION
     Dosage: UNK
  3. SILDENAFIL CITRATE. [Suspect]
     Active Substance: SILDENAFIL CITRATE
     Indication: CONGENITAL DIAPHRAGMATIC HERNIA
     Dosage: 1.6 MG/KG, DAILY
     Route: 048
  4. SILDENAFIL CITRATE. [Suspect]
     Active Substance: SILDENAFIL CITRATE
     Dosage: 0.4 MG/KG, UNK (OVER 3 H)
     Route: 042

REACTIONS (1)
  - Respiratory failure [Recovering/Resolving]
